FAERS Safety Report 12142204 (Version 1)
Quarter: 2016Q1

REPORT INFORMATION
  Report Type: Report from Study
  Country: US (occurrence: US)
  Receive Date: 20160303
  Receipt Date: 20160303
  Transmission Date: 20160526
  Serious: Yes (Other)
  Sender: FDA-Public Use
  Company Number: US-MYLANLABS-2016M1008936

PATIENT

DRUGS (1)
  1. CLOZAPINE. [Suspect]
     Active Substance: CLOZAPINE
     Dosage: UNK

REACTIONS (9)
  - Urinary tract infection [Unknown]
  - Unevaluable event [Unknown]
  - Hypertension [Unknown]
  - Encephalopathy [Unknown]
  - Hyperkalaemia [Unknown]
  - Septic shock [Unknown]
  - Renal failure [Unknown]
  - Ventricular tachycardia [None]
  - Dehydration [Unknown]
